FAERS Safety Report 8233381-1 (Version None)
Quarter: 2012Q1

REPORT INFORMATION
  Report Type: 
  Country: None (occurrence: None)
  Receive Date: 20120326
  Receipt Date: 20120313
  Transmission Date: 20120608
  Serious: Yes (Other)
  Sender: FDA-Public Use
  Company Number: GB-TEVA-217083ISR

PATIENT
  Age: 37 Year
  Sex: Female

DRUGS (1)
  1. CLOMIPRAMINE HCL [Suspect]
     Indication: NARCOLEPSY
     Dosage: 50 MILLIGRAM;

REACTIONS (1)
  - ANGIOEDEMA [None]
